FAERS Safety Report 5963703-3 (Version None)
Quarter: 2008Q4

REPORT INFORMATION
  Report Type: 
  Country: None (occurrence: None)
  Receive Date: 20081121
  Receipt Date: 20081121
  Transmission Date: 20090506
  Serious: Yes (Other)
  Sender: FDA-Public Use
  Company Number: None

PATIENT
  Age: 7 Year
  Sex: Female
  Weight: 20.4119 kg

DRUGS (1)
  1. GERM-X HAND SANITIZER [Suspect]
     Dosage: PRODUCT WAS INGESTED

REACTIONS (4)
  - ABNORMAL BEHAVIOUR [None]
  - ALCOHOL POISONING [None]
  - EYE DISORDER [None]
  - INCOHERENT [None]
